FAERS Safety Report 25997006 (Version 2)
Quarter: 2025Q4

REPORT INFORMATION
  Report Type: Report from Study
  Country: EU (occurrence: EU)
  Receive Date: 20251104
  Receipt Date: 20251112
  Transmission Date: 20260117
  Serious: Yes (Other)
  Sender: ABBVIE
  Company Number: EU-ABBVIE-6521862

PATIENT
  Age: 69 Year
  Sex: Male

DRUGS (2)
  1. CARBIDOPA AND LEVODOPA [Suspect]
     Active Substance: CARBIDOPA\LEVODOPA
     Indication: Parkinson^s disease
     Route: 050
     Dates: start: 20250826
  2. CARBIDOPA AND LEVODOPA [Suspect]
     Active Substance: CARBIDOPA\LEVODOPA
     Route: 050

REACTIONS (8)
  - Gastrostomy [Unknown]
  - Pyrexia [Recovered/Resolved]
  - Stoma site discharge [Unknown]
  - Abdominal wall infection [Unknown]
  - Stoma site erythema [Recovering/Resolving]
  - Device dislocation [Unknown]
  - Jejunostomy [Unknown]
  - Inflammation [Unknown]

NARRATIVE: CASE EVENT DATE: 20251001
